FAERS Safety Report 4897735-3 (Version None)
Quarter: 2005Q4

REPORT INFORMATION
  Report Type: 
  Country: None (occurrence: None)
  Receive Date: 20051223
  Receipt Date: 20050906
  Transmission Date: 20060501
  Serious: No
  Sender: FDA-Public Use
  Company Number: 05P-163-0310408-00

PATIENT
  Age: 68 Year
  Sex: Female
  Weight: 56.6996 kg

DRUGS (6)
  1. HUMIRA [Suspect]
     Indication: RHEUMATOID ARTHRITIS
     Dosage: SEE IMAGE
     Route: 058
     Dates: start: 20050722, end: 20050815
  2. HUMIRA [Suspect]
     Indication: RHEUMATOID ARTHRITIS
     Dosage: SEE IMAGE
     Route: 058
     Dates: start: 20050829
  3. METHOTREXATE [Concomitant]
  4. FOLIC ACID [Concomitant]
  5. RISEDRONATE SODIUM [Concomitant]
  6. ATORVASTATIN CALCIUM [Concomitant]

REACTIONS (4)
  - BACK PAIN [None]
  - DRUG INEFFECTIVE [None]
  - OEDEMA PERIPHERAL [None]
  - PAIN IN EXTREMITY [None]
